FAERS Safety Report 14252532 (Version 4)
Quarter: 2018Q1

REPORT INFORMATION
  Report Type: Report from Study
  Country: SG (occurrence: SG)
  Receive Date: 20171205
  Receipt Date: 20180109
  Transmission Date: 20180508
  Serious: Yes (Other)
  Sender: FDA-Public Use
  Company Number: SG-ASTELLAS-2017US050118

PATIENT
  Age: 11 Year
  Sex: Male
  Weight: 41 kg

DRUGS (112)
  1. CALCIUM CARBONATE. [Concomitant]
     Active Substance: CALCIUM CARBONATE
     Indication: HYPOCALCAEMIA
     Route: 048
     Dates: start: 20171022, end: 20171025
  2. EMLA [Concomitant]
     Active Substance: LIDOCAINE\PRILOCAINE
     Indication: PRODUCT USED FOR UNKNOWN INDICATION
     Dosage: 01 APPLICATION ONCE
     Route: 061
     Dates: start: 20171028, end: 20171028
  3. PARACETAMOL [Concomitant]
     Active Substance: ACETAMINOPHEN
     Indication: PYREXIA
     Dosage: 650 MG, ONCE
     Route: 042
     Dates: start: 20171019, end: 20171019
  4. CEFTRIAXONE. [Concomitant]
     Active Substance: CEFTRIAXONE
     Indication: ANTIBIOTIC THERAPY
     Dosage: 2 G, EVERY 24 HOURS
     Route: 042
     Dates: start: 20171019, end: 20171022
  5. ONDANSETRON [Concomitant]
     Active Substance: ONDANSETRON
     Indication: NAUSEA
     Route: 042
     Dates: start: 20171020, end: 20171108
  6. ONDANSETRON [Concomitant]
     Active Substance: ONDANSETRON
     Route: 042
     Dates: start: 20171026, end: 20171027
  7. DIPHENHYDRAMINE HCL [Concomitant]
     Active Substance: DIPHENHYDRAMINE HYDROCHLORIDE
     Dosage: 25 MG, ONCE
     Route: 042
     Dates: start: 20171026, end: 20171026
  8. HYDROCORTISONE. [Concomitant]
     Active Substance: HYDROCORTISONE
     Dosage: 60 MG, ONCE
     Route: 042
     Dates: start: 20171026, end: 20171026
  9. VANCOMYCIN [Concomitant]
     Active Substance: VANCOMYCIN
     Indication: INFECTION
     Route: 042
     Dates: start: 20171023, end: 20171024
  10. METHOTREXATE. [Concomitant]
     Active Substance: METHOTREXATE
     Dosage: 12.5 MG, ONCE
     Route: 037
     Dates: start: 20171030, end: 20171030
  11. LIGNOCAINE                         /00033401/ [Concomitant]
     Active Substance: LIDOCAINE HYDROCHLORIDE
     Indication: SURGERY
     Dosage: 2.5 ML, ONCE
     Route: 058
     Dates: start: 20171102, end: 20171102
  12. DEXTROSE W/POTASSIUM CHLORIDE [Concomitant]
     Route: 042
     Dates: start: 20171020, end: 20171020
  13. NACL [Concomitant]
     Active Substance: SODIUM CHLORIDE
     Dosage: 500 ML, ONCE
     Route: 042
     Dates: start: 20171025, end: 20171025
  14. ALBUMIN [Concomitant]
     Active Substance: ALBUMIN HUMAN
     Dosage: 500 ML, ONCE
     Route: 042
     Dates: start: 20171107, end: 20171107
  15. AMPHOTERICIN B. [Suspect]
     Active Substance: AMPHOTERICIN B
     Indication: EVIDENCE BASED TREATMENT
     Route: 042
     Dates: start: 20171107, end: 20171108
  16. ETORICOXIB [Concomitant]
     Active Substance: ETORICOXIB
     Indication: PAIN
     Dosage: 60 MG, ONCE
     Route: 048
     Dates: start: 20171102, end: 20171102
  17. MIDAZOLAM [Concomitant]
     Active Substance: MIDAZOLAM HYDROCHLORIDE
     Dosage: 10 MG, ONCE
     Route: 042
     Dates: start: 20171024, end: 20171024
  18. MIDAZOLAM [Concomitant]
     Active Substance: MIDAZOLAM HYDROCHLORIDE
     Dosage: 4 MG, ONCE
     Route: 042
     Dates: start: 20171030, end: 20171030
  19. MIDAZOLAM [Concomitant]
     Active Substance: MIDAZOLAM HYDROCHLORIDE
     Dosage: 50 MG, ONCE
     Route: 042
     Dates: start: 20171102, end: 20171102
  20. KETAMINE [Concomitant]
     Active Substance: KETAMINE
     Indication: SEDATION
     Dosage: 60 MG, ONCE
     Route: 042
     Dates: start: 20171019, end: 20171019
  21. DIPHENHYDRAMINE HCL [Concomitant]
     Active Substance: DIPHENHYDRAMINE HYDROCHLORIDE
     Dosage: 20 MG, ONCE
     Route: 042
     Dates: start: 20171022, end: 20171022
  22. DIPHENHYDRAMINE HCL [Concomitant]
     Active Substance: DIPHENHYDRAMINE HYDROCHLORIDE
     Dosage: 25 MG, ONCE
     Route: 042
     Dates: start: 20171028, end: 20171028
  23. HYDROCORTISONE. [Concomitant]
     Active Substance: HYDROCORTISONE
     Dosage: 100 MG, ONCE
     Route: 042
     Dates: start: 20171107, end: 20171107
  24. CYTARABINE. [Concomitant]
     Active Substance: CYTARABINE
     Dosage: 30 MG, ONCE
     Route: 037
     Dates: start: 20171030, end: 20171030
  25. MEROPENEM. [Concomitant]
     Active Substance: MEROPENEM
     Indication: PYREXIA
     Route: 042
     Dates: start: 20171030
  26. HYDROCORTISONE. [Concomitant]
     Active Substance: HYDROCORTISONE
     Indication: ACUTE MYELOID LEUKAEMIA
     Route: 037
     Dates: start: 20171030, end: 20171030
  27. MORPHINE [Concomitant]
     Active Substance: MORPHINE
     Dosage: 2.5 MG, ONCE
     Route: 042
     Dates: start: 20171101, end: 20171101
  28. NACL [Concomitant]
     Active Substance: SODIUM CHLORIDE
     Indication: FLUID REPLACEMENT
     Route: 042
     Dates: start: 20171019, end: 20171019
  29. NORMAL SALINE [Concomitant]
     Active Substance: SODIUM CHLORIDE
     Indication: FLUID REPLACEMENT
     Dosage: 200 ML, ONCE
     Route: 042
     Dates: start: 20171107, end: 20171107
  30. NORMAL SALINE [Concomitant]
     Active Substance: SODIUM CHLORIDE
     Dosage: 500 ML, ONCE
     Route: 042
     Dates: start: 20171107, end: 20171107
  31. PARACETAMOL [Concomitant]
     Active Substance: ACETAMINOPHEN
     Indication: PYREXIA
     Route: 048
     Dates: start: 20171019, end: 20171024
  32. FORLAX                             /00754501/ [Concomitant]
     Active Substance: POLYETHYLENE GLYCOL 4000
     Route: 048
     Dates: start: 20171103, end: 20171107
  33. CEFTRIAXONE. [Concomitant]
     Active Substance: CEFTRIAXONE
     Indication: PSOAS ABSCESS
     Route: 042
     Dates: start: 20171029, end: 20171030
  34. DIPHENHYDRAMINE HCL [Concomitant]
     Active Substance: DIPHENHYDRAMINE HYDROCHLORIDE
     Indication: PREMEDICATION
     Dosage: 20 MG, ONCE
     Route: 042
     Dates: start: 20171020, end: 20171020
  35. HYDROCORTISONE. [Concomitant]
     Active Substance: HYDROCORTISONE
     Dosage: 150 MG, ONCE
     Route: 042
     Dates: start: 20171025, end: 20171025
  36. HYDROCORTISONE. [Concomitant]
     Active Substance: HYDROCORTISONE
     Dosage: 60 MG, ONCE
     Route: 042
     Dates: start: 20171030, end: 20171030
  37. HYDROCORTISONE. [Concomitant]
     Active Substance: HYDROCORTISONE
     Dosage: 100 MG, ONCE
     Route: 042
     Dates: start: 20171105, end: 20171105
  38. VANCOMYCIN [Concomitant]
     Active Substance: VANCOMYCIN
     Indication: SEPTIC SHOCK
     Route: 042
     Dates: start: 20171022, end: 20171023
  39. VANCOMYCIN [Concomitant]
     Active Substance: VANCOMYCIN
     Indication: HAEMATOMA
     Route: 042
     Dates: start: 20171026, end: 20171026
  40. VANCOMYCIN [Concomitant]
     Active Substance: VANCOMYCIN
     Route: 042
     Dates: start: 20171024, end: 20171025
  41. ENOXAPARIN [Concomitant]
     Active Substance: ENOXAPARIN
     Dosage: 20 MG, ON
     Route: 058
     Dates: start: 20171101, end: 20171101
  42. NACL [Concomitant]
     Active Substance: SODIUM CHLORIDE
     Dosage: 500 ML, ONCE
     Route: 042
     Dates: start: 20171022, end: 20171022
  43. DEXTROSE AND SODIUM CHLORIDE [Concomitant]
     Active Substance: DEXTROSE MONOHYDRATE\SODIUM CHLORIDE
     Indication: FLUID OVERLOAD
     Route: 042
     Dates: start: 20171022, end: 20171024
  44. PANADEINE                          /00116401/ [Concomitant]
     Active Substance: ACETAMINOPHEN\CODEINE PHOSPHATE
     Indication: PYREXIA
     Route: 048
     Dates: start: 20171028, end: 20171030
  45. PANADEINE                          /00116401/ [Concomitant]
     Active Substance: ACETAMINOPHEN\CODEINE PHOSPHATE
     Indication: PAIN
  46. MIDAZOLAM [Concomitant]
     Active Substance: MIDAZOLAM HYDROCHLORIDE
     Indication: SEDATION
     Dosage: 4 MG, ONCE
     Route: 042
     Dates: start: 20171019, end: 20171019
  47. KETAMINE [Concomitant]
     Active Substance: KETAMINE
     Dosage: 100 MG, ONCE
     Route: 042
     Dates: start: 20171024, end: 20171024
  48. DIPHENHYDRAMINE HCL [Concomitant]
     Active Substance: DIPHENHYDRAMINE HYDROCHLORIDE
     Dosage: 25 MG, ONCE
     Route: 042
     Dates: start: 20171107, end: 20171107
  49. HYDROCORTISONE. [Concomitant]
     Active Substance: HYDROCORTISONE
     Indication: PRODUCT USED FOR UNKNOWN INDICATION
     Dosage: 100 MG, ONCE
     Route: 042
     Dates: start: 20171022, end: 20171022
  50. HYDROCORTISONE. [Concomitant]
     Active Substance: HYDROCORTISONE
     Route: 042
     Dates: start: 20171025, end: 20171026
  51. ENOXAPARIN [Concomitant]
     Active Substance: ENOXAPARIN
     Indication: THROMBOSIS
     Route: 058
     Dates: start: 20171027, end: 20171030
  52. MORPHINE                           /00036302/ [Concomitant]
     Active Substance: MORPHINE
     Indication: PAIN
     Dosage: 0.20 MCG/KG/HR, 24 HRS
     Route: 042
     Dates: start: 20171101, end: 20171108
  53. LACTULOSE. [Concomitant]
     Active Substance: LACTULOSE
     Indication: CONSTIPATION
     Dosage: 10 ML, TWICE DAILY (AS NEEDED)
     Route: 048
     Dates: start: 20171026, end: 20171103
  54. SENNA                              /00142201/ [Concomitant]
     Active Substance: SENNA LEAF
     Indication: CONSTIPATION
     Route: 048
     Dates: start: 20171027, end: 20171108
  55. TRIMETHOPRIM SULFAMETHOXAZOLE [Concomitant]
     Active Substance: SULFAMETHOXAZOLE\TRIMETHOPRIM
     Route: 048
     Dates: start: 20171106
  56. PARACETAMOL [Concomitant]
     Active Substance: ACETAMINOPHEN
     Indication: PREMEDICATION
     Route: 042
     Dates: start: 20171024, end: 20171024
  57. KETAMINE [Concomitant]
     Active Substance: KETAMINE
     Dosage: 50 MG, ONCE
     Route: 042
     Dates: start: 20171102, end: 20171102
  58. DIPHENHYDRAMINE HCL [Concomitant]
     Active Substance: DIPHENHYDRAMINE HYDROCHLORIDE
     Dosage: 20 MG, ONCE
     Route: 042
     Dates: start: 20171024, end: 20171024
  59. HYDROCORTISONE. [Concomitant]
     Active Substance: HYDROCORTISONE
     Indication: TRANSFUSION
     Dosage: 100 MG, ONCE
     Route: 042
     Dates: start: 20171020, end: 20171020
  60. HYDROCORTISONE. [Concomitant]
     Active Substance: HYDROCORTISONE
     Dosage: 50 MG, ONCE
     Route: 042
     Dates: start: 20171027, end: 20171027
  61. HYDROCORTISONE. [Concomitant]
     Active Substance: HYDROCORTISONE
     Dosage: 60 MG, ONCE
     Route: 042
     Dates: start: 20171028, end: 20171028
  62. MEROPENEM. [Concomitant]
     Active Substance: MEROPENEM
     Indication: INFECTION
     Route: 065
     Dates: end: 20171029
  63. VANCOMYCIN [Concomitant]
     Active Substance: VANCOMYCIN
     Dosage: 920 MG, EVERY 4 HOURS
     Route: 042
     Dates: start: 20171106, end: 20171106
  64. ENOXAPARIN [Concomitant]
     Active Substance: ENOXAPARIN
     Dosage: 20 MG, ON
     Route: 058
     Dates: start: 20171103, end: 20171105
  65. LIGNOCAINE                         /00033401/ [Concomitant]
     Active Substance: LIDOCAINE HYDROCHLORIDE
     Indication: ANAESTHESIA
     Dosage: 1 ML, ONCE
     Route: 058
     Dates: start: 20171106, end: 20171106
  66. DEXTROSE W/POTASSIUM CHLORIDE [Concomitant]
     Indication: FLUID REPLACEMENT
     Route: 042
     Dates: start: 20171019, end: 20171020
  67. SALBUTAMOL [Concomitant]
     Active Substance: ALBUTEROL
     Indication: COUGH
     Dosage: 6 PUFFS, ONCE DAILY, INHALER
     Route: 065
     Dates: start: 20171025, end: 20171025
  68. FORLAX                             /00754501/ [Concomitant]
     Active Substance: POLYETHYLENE GLYCOL 4000
     Indication: CONSTIPATION
     Route: 048
     Dates: start: 20171029, end: 20171031
  69. TRIMETHOPRIM SULFAMETHOXAZOLE [Concomitant]
     Active Substance: SULFAMETHOXAZOLE\TRIMETHOPRIM
     Indication: PROPHYLAXIS
     Route: 048
     Dates: start: 20171031, end: 20171102
  70. ETORICOXIB [Concomitant]
     Active Substance: ETORICOXIB
     Dosage: 60 MG, ONCE
     Route: 048
     Dates: start: 20171107, end: 20171107
  71. FLEET                              /00103901/ [Concomitant]
     Indication: CONSTIPATION
     Dosage: 20 ML, ONCE
     Route: 048
     Dates: start: 20171107, end: 20171107
  72. KETAMINE [Concomitant]
     Active Substance: KETAMINE
     Dosage: 50 MG, ONCE
     Route: 042
     Dates: start: 20171030, end: 20171030
  73. ATROPINE SULATE [Concomitant]
     Active Substance: ATROPINE SULFATE
     Indication: SEDATION
     Dosage: 600 ?G, ONCE
     Route: 042
     Dates: start: 20171019, end: 20171019
  74. MITOXANTRONE [Concomitant]
     Active Substance: MITOXANTRONE HYDROCHLORIDE
     Indication: ACUTE MYELOID LEUKAEMIA
     Dosage: 13 MG, EVERY 24 HRS
     Route: 065
     Dates: start: 20171020, end: 20171024
  75. DIPHENHYDRAMINE HCL [Concomitant]
     Active Substance: DIPHENHYDRAMINE HYDROCHLORIDE
     Dosage: 25 MG, ONCE
     Route: 042
     Dates: start: 20171027, end: 20171027
  76. CYTARABINE. [Concomitant]
     Active Substance: CYTARABINE
     Indication: ACUTE MYELOID LEUKAEMIA
     Route: 042
     Dates: start: 20171021, end: 20171023
  77. CYTARABINE. [Concomitant]
     Active Substance: CYTARABINE
     Dosage: 1330 MG, ONCE
     Route: 042
     Dates: start: 20171024, end: 20171024
  78. MEROPENEM. [Concomitant]
     Active Substance: MEROPENEM
     Indication: SEPTIC SHOCK
     Route: 042
     Dates: start: 20171022, end: 20171029
  79. VANCOMYCIN [Concomitant]
     Active Substance: VANCOMYCIN
     Dosage: 920 MG, EVERY 4 HOURS
     Route: 042
     Dates: start: 20171026, end: 20171028
  80. VANCOMYCIN [Concomitant]
     Active Substance: VANCOMYCIN
     Dosage: 920 MG, EVERY 4 HOURS
     Route: 042
     Dates: start: 20171102, end: 20171105
  81. METHOTREXATE. [Concomitant]
     Active Substance: METHOTREXATE
     Indication: ACUTE MYELOID LEUKAEMIA
     Dosage: 12.5 MG, ONCE
     Route: 037
     Dates: start: 20171030, end: 20171030
  82. AMPHOTERICIN B. [Concomitant]
     Active Substance: AMPHOTERICIN B
     Indication: FUNGAL INFECTION
     Dosage: 42 MG, ONCE
     Route: 042
     Dates: start: 20171107, end: 20171107
  83. DEXTROSE W/POTASSIUM CHLORIDE [Concomitant]
     Route: 042
     Dates: start: 20171024, end: 20171025
  84. NACL [Concomitant]
     Active Substance: SODIUM CHLORIDE
     Indication: FLUID REPLACEMENT
     Dosage: 500 ML, ONCE
     Route: 042
     Dates: start: 20171022, end: 20171022
  85. NACL [Concomitant]
     Active Substance: SODIUM CHLORIDE
     Dosage: 500 ML, ONCE
     Route: 042
     Dates: start: 20171025, end: 20171025
  86. FENTANYL. [Concomitant]
     Active Substance: FENTANYL
     Indication: SEDATION
     Dosage: 50 ?G, ONCE
     Route: 042
     Dates: start: 20171024, end: 20171024
  87. MICAFUNGIN [Suspect]
     Active Substance: MICAFUNGIN
     Indication: EVIDENCE BASED TREATMENT
     Route: 042
     Dates: start: 20171031, end: 20171106
  88. MICAFUNGIN [Suspect]
     Active Substance: MICAFUNGIN
     Indication: FEBRILE NEUTROPENIA
  89. TEARS NATURALE FREE                /00134201/ [Concomitant]
     Indication: DRY EYE
     Dosage: 2 DROPS, EVERY 4 HOURS
     Route: 047
     Dates: start: 20171020, end: 20171027
  90. MORPHINE SULFATE. [Concomitant]
     Active Substance: MORPHINE SULFATE
     Indication: PAIN
     Dosage: 5 MG, EVERY 6 HOURS AS NEEDED
     Route: 048
     Dates: start: 20171030, end: 20171101
  91. PARACETAMOL [Concomitant]
     Active Substance: ACETAMINOPHEN
     Dosage: 650 MG, EVERY 6 HOURS AS NEEDED
     Route: 042
     Dates: start: 20171030, end: 20171108
  92. ATROPINE SULATE [Concomitant]
     Active Substance: ATROPINE SULFATE
     Route: 042
     Dates: start: 20171102, end: 20171102
  93. DIPHENHYDRAMINE HCL [Concomitant]
     Active Substance: DIPHENHYDRAMINE HYDROCHLORIDE
     Dosage: 25 MG, ONCE
     Route: 042
     Dates: start: 20171030, end: 20171030
  94. DIPHENHYDRAMINE HCL [Concomitant]
     Active Substance: DIPHENHYDRAMINE HYDROCHLORIDE
     Dosage: 25 MG, ONCE
     Route: 042
     Dates: start: 20171105, end: 20171105
  95. HYDROCORTISONE. [Concomitant]
     Active Substance: HYDROCORTISONE
     Dosage: 100 MG, ONCE
     Route: 042
     Dates: start: 20171024, end: 20171024
  96. HYDROCORTISONE. [Concomitant]
     Active Substance: HYDROCORTISONE
     Dosage: 100 MG, ONCE
     Route: 042
     Dates: start: 20171102, end: 20171102
  97. CALCIUM GLUCONATE. [Concomitant]
     Active Substance: CALCIUM GLUCONATE
     Indication: HYPOCALCAEMIA
     Dosage: 4.6 MMOL, ONCE
     Route: 042
     Dates: start: 20171022, end: 20171022
  98. VANCOMYCIN [Concomitant]
     Active Substance: VANCOMYCIN
     Dosage: 1 G, EVERY 4 HOURS
     Route: 042
     Dates: start: 20171105, end: 20171105
  99. VANCOMYCIN [Concomitant]
     Active Substance: VANCOMYCIN
     Dosage: 920 MG, EVERY 4 HOURS
     Route: 042
     Dates: start: 20171107, end: 20171107
  100. FRUSEMIDE                          /00032601/ [Concomitant]
     Active Substance: FUROSEMIDE
     Indication: FLUID OVERLOAD
     Dosage: 20 MG, ONCE
     Route: 042
     Dates: start: 20171026, end: 20171026
  101. AMIKACIN [Concomitant]
     Active Substance: AMIKACIN
     Indication: PYREXIA
     Dosage: 675 MG, ONCE
     Route: 042
     Dates: start: 20171030, end: 20171030
  102. ALBUMIN [Concomitant]
     Active Substance: ALBUMIN HUMAN
     Indication: FLUID REPLACEMENT
     Dosage: 500 ML, ONCE
     Route: 042
     Dates: start: 20171022, end: 20171022
  103. PARACETAMOL [Concomitant]
     Active Substance: ACETAMINOPHEN
     Dosage: 650 MG, EVERY 6 HOURS AS NEEDED
     Route: 042
     Dates: start: 20171024, end: 20171027
  104. ATROPINE SULATE [Concomitant]
     Active Substance: ATROPINE SULFATE
     Dosage: 600 ?G, ONCE
     Route: 042
     Dates: start: 20171030, end: 20171030
  105. ONDANSETRON [Concomitant]
     Active Substance: ONDANSETRON
     Indication: VOMITING
     Route: 042
     Dates: start: 20171027, end: 20171101
  106. DIPHENHYDRAMINE HCL [Concomitant]
     Active Substance: DIPHENHYDRAMINE HYDROCHLORIDE
     Dosage: 25 MG, ONCE
     Route: 042
     Dates: start: 20171102, end: 20171102
  107. DIPHENHYDRAMINE HCL [Concomitant]
     Active Substance: DIPHENHYDRAMINE HYDROCHLORIDE
     Dosage: 25 MG, ONCE
     Route: 042
     Dates: start: 20171026, end: 20171026
  108. ENOXAPARIN [Concomitant]
     Active Substance: ENOXAPARIN
     Route: 058
     Dates: start: 20171031, end: 20171031
  109. MORPHINE [Concomitant]
     Active Substance: MORPHINE
     Indication: PAIN
     Dosage: 2.5 MG, ONCE
     Route: 042
     Dates: start: 20171101, end: 20171101
  110. DEXTROSE W/POTASSIUM CHLORIDE [Concomitant]
     Route: 042
     Dates: start: 20171025, end: 20171107
  111. NORMAL SALINE [Concomitant]
     Active Substance: SODIUM CHLORIDE
     Dosage: 500 ML, ONCE
     Route: 042
     Dates: start: 20171107, end: 20171107
  112. ALBUMIN [Concomitant]
     Active Substance: ALBUMIN HUMAN
     Dosage: 500 ML, ONCE
     Route: 042
     Dates: start: 20171022, end: 20171022

REACTIONS (4)
  - Transaminases increased [Recovering/Resolving]
  - Thrombocytopenia [Recovered/Resolved]
  - Haemodynamic instability [Recovered/Resolved]
  - Anaemia [Recovered/Resolved]

NARRATIVE: CASE EVENT DATE: 20171107
